FAERS Safety Report 16793793 (Version 1)
Quarter: 2019Q3

REPORT INFORMATION
  Report Type: Spontaneous
  Country: US (occurrence: US)
  Receive Date: 20190911
  Receipt Date: 20190911
  Transmission Date: 20191005
  Serious: Yes (Other)
  Sender: FDA-Public Use
  Company Number: US-ASTRAZENECA-2019SF26048

PATIENT
  Sex: Female

DRUGS (1)
  1. FASENRA [Suspect]
     Active Substance: BENRALIZUMAB
     Route: 058
     Dates: start: 201812

REACTIONS (5)
  - Menstrual disorder [Unknown]
  - Rash [Unknown]
  - Hormone level abnormal [Unknown]
  - Depression [Unknown]
  - Polyp [Unknown]
